FAERS Safety Report 8989775 (Version 2)
Quarter: 2013Q1

REPORT INFORMATION
  Report Type: Spontaneous
  Country: GB (occurrence: GB)
  Receive Date: 20121228
  Receipt Date: 20130131
  Transmission Date: 20140127
  Serious: Yes (Other)
  Sender: FDA-Public Use
  Company Number: GB-B.I. PHARMACEUTICALS,INC./RIDGEFIELD-2012-UK-01908UK

PATIENT
  Age: 61 Year
  Sex: Male

DRUGS (1)
  1. FLOMAX RELIEF MR [Suspect]
     Indication: BENIGN PROSTATIC HYPERPLASIA
     Dosage: 0.4 MG
     Dates: start: 2012, end: 201211

REACTIONS (5)
  - Blood urine present [Not Recovered/Not Resolved]
  - Urinary retention [Not Recovered/Not Resolved]
  - Urine abnormality [Unknown]
  - Cystitis [Not Recovered/Not Resolved]
  - Urogenital haemorrhage [Not Recovered/Not Resolved]
